FAERS Safety Report 19280085 (Version 1)
Quarter: 2021Q2

REPORT INFORMATION
  Report Type: Spontaneous
  Country: US (occurrence: US)
  Receive Date: 20210520
  Receipt Date: 20210520
  Transmission Date: 20210717
  Serious: Yes (Other)
  Sender: FDA-Public Use
  Company Number: US-009507513-2105USA003721

PATIENT
  Sex: Female

DRUGS (1)
  1. KEYTRUDA [Suspect]
     Active Substance: PEMBROLIZUMAB
     Indication: TRIPLE NEGATIVE BREAST CANCER
     Dosage: UNK
     Route: 042

REACTIONS (7)
  - Polydipsia [Recovering/Resolving]
  - Rib fracture [Recovering/Resolving]
  - Pain [Recovering/Resolving]
  - Rash [Recovering/Resolving]
  - Bone pain [Recovering/Resolving]
  - Loss of consciousness [Recovering/Resolving]
  - Asthenia [Recovering/Resolving]
